FAERS Safety Report 5697133-9 (Version None)
Quarter: 2008Q2

REPORT INFORMATION
  Report Type: 
  Country: None (occurrence: None)
  Receive Date: 20080408
  Receipt Date: 20080327
  Transmission Date: 20081010
  Serious: Yes (Death, Other)
  Sender: FDA-Public Use
  Company Number: US-ELI_LILLY_AND_COMPANY-US200803006272

PATIENT
  Age: 65 Year
  Sex: Female

DRUGS (3)
  1. XIGRIS [Suspect]
     Indication: SEPSIS
     Route: 042
     Dates: start: 20080301, end: 20080301
  2. IMMUNOSUPPRESSIVE AGENTS [Concomitant]
     Dosage: UNK, SEVERAL
  3. LEVOPHED [Concomitant]

REACTIONS (3)
  - COAGULOPATHY [None]
  - DEATH [None]
  - HAEMORRHAGE [None]
